FAERS Safety Report 4263773-7 (Version None)
Quarter: 2004Q1

REPORT INFORMATION
  Report Type: 
  Country: None (occurrence: None)
  Receive Date: 20040102
  Receipt Date: 20031223
  Transmission Date: 20041129
  Serious: Yes (Other)
  Sender: FDA-Public Use
  Company Number: US_000846607

PATIENT
  Age: 56 Year
  Sex: Female
  Weight: 73 kg

DRUGS (2)
  1. HUMULIN L [Suspect]
     Indication: DIABETES MELLITUS
     Dosage: 76 U/DAY
     Dates: end: 19991101
  2. ILETIN [Suspect]
     Indication: DIABETES MELLITUS
     Dosage: 76 U/DAY
     Dates: end: 19991101

REACTIONS (3)
  - EYE HAEMORRHAGE [None]
  - HYPOAESTHESIA [None]
  - PAIN IN EXTREMITY [None]
